FAERS Safety Report 7122146-X (Version None)
Quarter: 2010Q4

REPORT INFORMATION
  Report Type: 
  Country: None (occurrence: None)
  Receive Date: 20101124
  Receipt Date: 20101115
  Transmission Date: 20110411
  Serious: Yes (Other)
  Sender: FDA-Public Use
  Company Number: GB-BRISTOL-MYERS SQUIBB COMPANY-15399728

PATIENT
  Age: 69 Year
  Sex: Male
  Weight: 88 kg

DRUGS (2)
  1. METFORMIN HCL [Suspect]
     Indication: TYPE 2 DIABETES MELLITUS
     Dosage: 2000MG
     Dates: start: 20080225, end: 20100728
  2. VICTOZA [Interacting]
     Indication: TYPE 2 DIABETES MELLITUS
     Route: 058
     Dates: start: 20100519

REACTIONS (3)
  - DRUG INTERACTION [None]
  - DYSPNOEA [None]
  - TENSION HEADACHE [None]
